FAERS Safety Report 11118854 (Version 3)
Quarter: 2015Q2

REPORT INFORMATION
  Report Type: Spontaneous
  Country: DE (occurrence: DE)
  Receive Date: 20150518
  Receipt Date: 20150630
  Transmission Date: 20150821
  Serious: Yes (Death, Other)
  Sender: FDA-Public Use
  Company Number: DE-ASTELLAS-2015EU005911

PATIENT
  Sex: Male

DRUGS (3)
  1. XTANDI [Suspect]
     Active Substance: ENZALUTAMIDE
     Indication: PROSTATE CANCER
     Dosage: 160 MG (4 CAPSULES DAILY)
     Route: 048
     Dates: start: 20141107, end: 20150411
  2. XTANDI [Suspect]
     Active Substance: ENZALUTAMIDE
     Indication: PROSTATE CANCER METASTATIC
     Route: 065
  3. TRENANTONE [Concomitant]
     Active Substance: LEUPROLIDE ACETATE
     Indication: PROSTATE CANCER
     Dosage: UNK UNK, CYCLIC(EVERY 3 MONTHS)
     Route: 058
     Dates: start: 20120712

REACTIONS (3)
  - Back pain [Recovering/Resolving]
  - Malignant neoplasm progression [Fatal]
  - Muscle spasms [Recovering/Resolving]

NARRATIVE: CASE EVENT DATE: 20150327
